FAERS Safety Report 4759125-3 (Version None)
Quarter: 2005Q3

REPORT INFORMATION
  Report Type: 
  Country: None (occurrence: None)
  Receive Date: 20050901
  Receipt Date: 20050302
  Transmission Date: 20060218
  Serious: Yes (Life-Threatening)
  Sender: FDA-Public Use
  Company Number: 200510405DE

PATIENT
  Age: 77 Year
  Sex: Male

DRUGS (4)
  1. AMARYL [Suspect]
     Indication: DIABETES MELLITUS
     Route: 048
     Dates: end: 20050118
  2. AMARYL [Suspect]
     Indication: SKIN ULCER
     Route: 048
     Dates: end: 20050118
  3. TARIVID ORAL [Suspect]
     Indication: CELLULITIS
     Dosage: DOSE: 1-0-1
     Route: 048
  4. GLUCOBAY [Concomitant]
     Indication: DIABETES MELLITUS
     Route: 048

REACTIONS (3)
  - CONVULSION [None]
  - HYPOGLYCAEMIA [None]
  - MUSCLE SPASMS [None]
